FAERS Safety Report 6412997-9 (Version None)
Quarter: 2009Q4

REPORT INFORMATION
  Report Type: 
  Country: None (occurrence: None)
  Receive Date: 20091023
  Receipt Date: 20091021
  Transmission Date: 20100525
  Serious: Yes (Other)
  Sender: FDA-Public Use
  Company Number: PHEH2009US14143

PATIENT
  Sex: Female

DRUGS (5)
  1. EXELON [Suspect]
     Dosage: UNK
     Dates: start: 20090701, end: 20091018
  2. METOPROLOL [Concomitant]
  3. VYTORIN [Concomitant]
  4. SYNTHROID [Concomitant]
  5. CITALOPRAM HYDROBROMIDE [Concomitant]

REACTIONS (4)
  - PRURITUS [None]
  - RASH [None]
  - RASH ERYTHEMATOUS [None]
  - SKIN HAEMORRHAGE [None]
